FAERS Safety Report 14395897 (Version 1)
Quarter: 2018Q1

REPORT INFORMATION
  Report Type: Spontaneous
  Country: US (occurrence: US)
  Receive Date: 20180116
  Receipt Date: 20180116
  Transmission Date: 20180509
  Serious: No
  Sender: FDA-Public Use
  Company Number: US-ALLERGAN-1717100US

PATIENT
  Age: 55 Year
  Sex: Female

DRUGS (1)
  1. BOTOX [Suspect]
     Active Substance: ONABOTULINUMTOXINA
     Indication: FACIAL SPASM
     Dosage: 50 UNITS, SINGLE
     Route: 030
     Dates: start: 20170323, end: 20170323

REACTIONS (3)
  - Eyelid ptosis [Recovering/Resolving]
  - Haematoma [Recovering/Resolving]
  - Swelling face [Recovering/Resolving]
